FAERS Safety Report 23696689 (Version 1)
Quarter: 2024Q2

REPORT INFORMATION
  Report Type: Spontaneous
  Country: US (occurrence: US)
  Receive Date: 20240402
  Receipt Date: 20240402
  Transmission Date: 20240717
  Serious: No
  Sender: FDA-Public Use
  Company Number: US-Eisai-EC-2024-159398

PATIENT
  Age: 72 Year
  Sex: Female

DRUGS (1)
  1. LEQEMBI [Suspect]
     Active Substance: LECANEMAB-IRMB
     Indication: Dementia Alzheimer^s type
     Dosage: DOSE UNKNOWN
     Route: 048
     Dates: start: 20240212

REACTIONS (4)
  - Tremor [Unknown]
  - Headache [Unknown]
  - Axillary pain [Unknown]
  - Nausea [Unknown]

NARRATIVE: CASE EVENT DATE: 20240212
